FAERS Safety Report 8959656 (Version 1)
Quarter: 2012Q4

REPORT INFORMATION
  Report Type: 
  Country: US (occurrence: US)
  Receive Date: 20121212
  Receipt Date: 20121212
  Transmission Date: 20130627
  Serious: No
  Sender: FDA-Public Use
  Company Number: US-TEVA-353606USA

PATIENT
  Sex: Male

DRUGS (8)
  1. BUDESONIDE [Suspect]
     Indication: EMPHYSEMA
     Dosage: stopped 2 days ago
  2. FORMOTEROL [Concomitant]
  3. SALBUTAMOL [Concomitant]
     Dosage: inhaler
  4. ALPRAZOLAM [Concomitant]
  5. BREVA [Concomitant]
  6. PREDNISONE [Concomitant]
  7. QUETIAPINE [Concomitant]
  8. PROMETHAZINE [Concomitant]

REACTIONS (3)
  - Dysgeusia [Recovered/Resolved]
  - Sensation of pressure [Recovered/Resolved]
  - Dyspnoea [Recovered/Resolved]
